FAERS Safety Report 24282422 (Version 2)
Quarter: 2024Q3

REPORT INFORMATION
  Report Type: Spontaneous
  Country: US (occurrence: US)
  Receive Date: 20240904
  Receipt Date: 20240926
  Transmission Date: 20241016
  Serious: Yes (Hospitalization)
  Sender: BIOVITRUM
  Company Number: US-BIOVITRUM-2024-US-008882

PATIENT
  Age: 68 Year
  Sex: Male

DRUGS (1)
  1. VONJO [Suspect]
     Active Substance: PACRITINIB
     Indication: Myelofibrosis
     Dosage: DAILY
     Route: 048
     Dates: start: 20221215

REACTIONS (10)
  - Fall [Unknown]
  - Platelet count decreased [Unknown]
  - Full blood count decreased [Unknown]
  - Road traffic accident [Unknown]
  - Dehydration [Unknown]
  - Disorientation [Unknown]
  - Product use issue [Unknown]
  - Body temperature increased [Unknown]
  - Asthenia [Unknown]
  - Peripheral swelling [Unknown]

NARRATIVE: CASE EVENT DATE: 20240701
